FAERS Safety Report 16006638 (Version 1)
Quarter: 2019Q1

REPORT INFORMATION
  Report Type: Spontaneous
  Country: IT (occurrence: IT)
  Receive Date: 20190226
  Receipt Date: 20190226
  Transmission Date: 20190418
  Serious: Yes (Hospitalization)
  Sender: FDA-Public Use
  Company Number: IT-BAYER-2019-036424

PATIENT
  Age: 72 Year
  Sex: Female

DRUGS (5)
  1. CARDIOASPIRIN 100 MG [Suspect]
     Active Substance: ASPIRIN
     Indication: CEREBROVASCULAR ACCIDENT
     Dosage: 100 MG, QD
     Route: 048
     Dates: start: 20160201, end: 20190210
  2. TRIATEC [RAMIPRIL] [Concomitant]
     Active Substance: RAMIPRIL
     Dosage: UNK
  3. METFORMIN [Concomitant]
     Active Substance: METFORMIN HYDROCHLORIDE
     Dosage: UNK
  4. COUMADIN [Suspect]
     Active Substance: WARFARIN SODIUM
     Indication: MITRAL VALVOTOMY
     Dosage: 5 MG, QD
     Route: 048
     Dates: start: 20140201, end: 20190210
  5. DILATREND [Concomitant]
     Active Substance: CARVEDILOL
     Dosage: UNK

REACTIONS (4)
  - Treatment noncompliance [Unknown]
  - Ischaemic stroke [Unknown]
  - Dysarthria [Unknown]
  - Paresis [Unknown]

NARRATIVE: CASE EVENT DATE: 20190210
